APPROVED DRUG PRODUCT: SIMVASTATIN
Active Ingredient: SIMVASTATIN
Strength: 5MG
Dosage Form/Route: TABLET;ORAL
Application: A078155 | Product #005 | TE Code: AB
Applicant: ACCORD HEALTHCARE INC
Approved: Apr 5, 2013 | RLD: No | RS: No | Type: RX